FAERS Safety Report 21396634 (Version 2)
Quarter: 2022Q4

REPORT INFORMATION
  Report Type: Spontaneous
  Country: US (occurrence: US)
  Receive Date: 20220930
  Receipt Date: 20221214
  Transmission Date: 20230112
  Serious: No
  Sender: FDA-Public Use
  Company Number: US-BRISTOL-MYERS SQUIBB COMPANY-2022-113100

PATIENT
  Age: 39 Year
  Sex: Male

DRUGS (2)
  1. OPDIVO [Suspect]
     Active Substance: NIVOLUMAB
     Indication: Metastatic renal cell carcinoma
     Dosage: IV OVER 30 MINUTES IN NORMAL SALINE FOR OPDIVO?IV OVER 30 MINUTES EVERY 21 DAYS
     Route: 042
     Dates: start: 20220920, end: 20220920
  2. IPILIMUMAB [Suspect]
     Active Substance: IPILIMUMAB
     Indication: Metastatic renal cell carcinoma
     Dosage: IV OVER 30 MINUTES  IN NORMAL SALINE FOR OPDIVO??IV OVER 30 MINUTES EVERY 21 DAYS
     Route: 042
     Dates: start: 20220830

REACTIONS (7)
  - Nausea [Recovering/Resolving]
  - Back pain [Recovering/Resolving]
  - Malaise [Recovering/Resolving]
  - Vomiting [Recovering/Resolving]
  - Pallor [Recovering/Resolving]
  - Hyperhidrosis [Recovering/Resolving]
  - Tremor [Recovering/Resolving]

NARRATIVE: CASE EVENT DATE: 20220920
